FAERS Safety Report 12733844 (Version 4)
Quarter: 2017Q3

REPORT INFORMATION
  Report Type: Report from Study
  Country: CN (occurrence: CN)
  Receive Date: 20160912
  Receipt Date: 20170710
  Transmission Date: 20171127
  Serious: Yes (Other)
  Sender: FDA-Public Use
  Company Number: CN-ROCHE-1721325

PATIENT
  Age: 49 Year
  Sex: Female
  Weight: 74 kg

DRUGS (1)
  1. AVASTIN [Suspect]
     Active Substance: BEVACIZUMAB
     Indication: COLON CANCER
     Route: 041
     Dates: start: 20150619, end: 20160107

REACTIONS (6)
  - Platelet count decreased [Unknown]
  - Intestinal obstruction [Unknown]
  - Ill-defined disorder [Unknown]
  - Diarrhoea [Unknown]
  - Impaired healing [Unknown]
  - Uterine neoplasm [Unknown]

NARRATIVE: CASE EVENT DATE: 201601
